FAERS Safety Report 5483643-6 (Version None)
Quarter: 2007Q4

REPORT INFORMATION
  Report Type: 
  Country: None (occurrence: None)
  Receive Date: 20071012
  Receipt Date: 20071002
  Transmission Date: 20080405
  Serious: Yes (Other)
  Sender: FDA-Public Use
  Company Number: ZA-JNJFOC-20071001010

PATIENT
  Sex: Female

DRUGS (5)
  1. REVELLEX [Suspect]
     Indication: RHEUMATOID ARTHRITIS
     Route: 042
  2. KEFLEX [Concomitant]
  3. FOLIC ACID [Concomitant]
  4. ARAVA [Concomitant]
  5. ELTROXIN [Concomitant]

REACTIONS (4)
  - HYPOKINESIA [None]
  - INFUSION RELATED REACTION [None]
  - PAIN [None]
  - PRURITUS [None]
